FAERS Safety Report 9698566 (Version 1)
Quarter: 2013Q4

REPORT INFORMATION
  Report Type: Spontaneous
  Country: US (occurrence: US)
  Receive Date: 20131120
  Receipt Date: 20131120
  Transmission Date: 20140711
  Serious: Yes (Other)
  Sender: FDA-Public Use
  Company Number: US-PFIZER INC-2013327176

PATIENT
  Age: 38 Year
  Sex: Male
  Weight: 22.68 kg

DRUGS (1)
  1. TOBRAMYCIN [Suspect]
     Indication: NEUROMYOPATHY
     Dosage: UNK

REACTIONS (3)
  - Pulmonary haemorrhage [Unknown]
  - Staphylococcal infection [Unknown]
  - Bacterial infection [Unknown]
